FAERS Safety Report 4585362-7 (Version None)
Quarter: 2005Q1

REPORT INFORMATION
  Report Type: 
  Country: None (occurrence: None)
  Receive Date: 20050217
  Receipt Date: 20050211
  Transmission Date: 20050727
  Serious: Yes (Hospitalization)
  Sender: FDA-Public Use
  Company Number: 200510362EU

PATIENT
  Age: 82 Year
  Sex: Female

DRUGS (3)
  1. ENOXAPARIN SODIUM [Suspect]
     Indication: PHLEBOTHROMBOSIS
     Route: 058
     Dates: start: 20050105, end: 20050204
  2. ENOXAPARIN SODIUM [Suspect]
     Indication: PROPHYLAXIS
     Route: 058
     Dates: start: 20050105, end: 20050204
  3. PANTORC [Suspect]
     Indication: PROPHYLAXIS AGAINST GASTROINTESTINAL ULCER
     Route: 048
     Dates: start: 20050105, end: 20050204

REACTIONS (1)
  - LEUKOPENIA [None]
